FAERS Safety Report 8613410-3 (Version None)
Quarter: 2012Q3

REPORT INFORMATION
  Report Type: 
  Country: None (occurrence: None)
  Receive Date: 20120822
  Receipt Date: 20120723
  Transmission Date: 20120928
  Serious: Yes (Hospitalization)
  Sender: FDA-Public Use
  Company Number: US-009507513-1207USA010622

PATIENT

DRUGS (6)
  1. METOPROLOL TARTRATE [Concomitant]
     Route: 048
  2. ZOCOR [Interacting]
     Dosage: UNK
     Route: 048
  3. RAMIPRIL [Concomitant]
     Route: 048
  4. ASPIRIN [Concomitant]
     Route: 048
  5. ZOCOR [Interacting]
     Dosage: UNK
  6. BRILINTA [Suspect]
     Route: 048

REACTIONS (5)
  - PAIN IN EXTREMITY [None]
  - DRUG INTERACTION [None]
  - LIVER FUNCTION TEST ABNORMAL [None]
  - BLOOD CREATINE PHOSPHOKINASE INCREASED [None]
  - RHABDOMYOLYSIS [None]
